FAERS Safety Report 23507165 (Version 1)
Quarter: 2024Q1

REPORT INFORMATION
  Report Type: Spontaneous
  Country: GB (occurrence: GB)
  Receive Date: 20240209
  Receipt Date: 20240209
  Transmission Date: 20240409
  Serious: Yes (Other)
  Sender: FDA-Public Use
  Company Number: None

PATIENT
  Age: 74 Year

DRUGS (12)
  1. PIPERACILLIN SODIUM\TAZOBACTAM SODIUM [Suspect]
     Active Substance: PIPERACILLIN SODIUM\TAZOBACTAM SODIUM
     Dosage: TDS 4/7.  22/06-24/06 + 04/07
  2. LATANOPROST [Concomitant]
     Active Substance: LATANOPROST
     Dosage: 1 DROP, 1X/DAY (IN BOTH EYES)
     Route: 047
  3. AMOXICILLIN [Concomitant]
     Active Substance: AMOXICILLIN
     Dosage: 2G TDS 14/06-15/061G TDS 15/06-22/06
  4. TIMOLOL [Concomitant]
     Active Substance: TIMOLOL
     Dosage: 1 DROP, 1X/DAY (IN BOTH EYES)
  5. FUROSEMIDE [Concomitant]
     Active Substance: FUROSEMIDE
     Dosage: EACH MORNING
  6. BISOPROLOL [Concomitant]
     Active Substance: BISOPROLOL\BISOPROLOL FUMARATE
     Dosage: UNK UNK, 1X/DAY
  7. LANSOPRAZOLE [Concomitant]
     Active Substance: LANSOPRAZOLE
     Dosage: EACH MORNING
  8. APIXABAN [Concomitant]
     Active Substance: APIXABAN
     Dosage: 5 MG, 2X/DAY
  9. ATORVASTATIN [Concomitant]
     Active Substance: ATORVASTATIN
     Dosage: 20 MG, 1X/DAY (AT NIGHT)
  10. FOLIC ACID [Concomitant]
     Active Substance: FOLIC ACID
     Dosage: FOR 3 MONTHS ONLY
  11. CITALOPRAM [Concomitant]
     Active Substance: CITALOPRAM HYDROBROMIDE
     Dosage: 20 MG, 1X/DAY
  12. EVOLVE HA [Concomitant]
     Dosage: UNK

REACTIONS (1)
  - Drug-induced liver injury [Unknown]
